FAERS Safety Report 13423134 (Version 4)
Quarter: 2017Q2

REPORT INFORMATION
  Report Type: Spontaneous
  Country: EE (occurrence: EE)
  Receive Date: 20170410
  Receipt Date: 20170622
  Transmission Date: 20170830
  Serious: Yes (Hospitalization)
  Sender: FDA-Public Use
  Company Number: ALCN2017EE002523

PATIENT
  Age: 77 Year
  Sex: Male

DRUGS (1)
  1. DEXAMETHASONE. [Suspect]
     Active Substance: DEXAMETHASONE
     Indication: KERATITIS
     Dosage: UNK
     Route: 047

REACTIONS (5)
  - Keratitis [Unknown]
  - Ulcerative keratitis [Unknown]
  - Anterior chamber disorder [Unknown]
  - Corneal perforation [Unknown]
  - Cataract [Unknown]
